FAERS Safety Report 12544825 (Version 1)
Quarter: 2016Q3

REPORT INFORMATION
  Report Type: Report from Study
  Country: US (occurrence: US)
  Receive Date: 20160711
  Receipt Date: 20160711
  Transmission Date: 20161109
  Serious: No
  Sender: FDA-Public Use
  Company Number: US-009507513-1607USA003814

PATIENT
  Age: 65 Year
  Sex: Female

DRUGS (1)
  1. KEYTRUDA [Suspect]
     Active Substance: PEMBROLIZUMAB
     Indication: NON-SMALL CELL LUNG CANCER

REACTIONS (5)
  - Somnolence [Unknown]
  - Lip swelling [Unknown]
  - Fall [Unknown]
  - Crying [Unknown]
  - Tooth injury [Unknown]

NARRATIVE: CASE EVENT DATE: 20160707
